FAERS Safety Report 8956563 (Version 1)
Quarter: 2012Q4

REPORT INFORMATION
  Report Type: 
  Country: GB (occurrence: GB)
  Receive Date: 20121210
  Receipt Date: 20121210
  Transmission Date: 20130627
  Serious: Yes (Other)
  Sender: FDA-Public Use
  Company Number: GB-JNJFOC-20121113535

PATIENT

DRUGS (2)
  1. RISPERIDONE [Suspect]
     Indication: BIPOLAR DISORDER
     Route: 065
  2. BENZODIAZEPINE NOS [Suspect]
     Indication: PRODUCT USED FOR UNKNOWN INDICATION
     Route: 065

REACTIONS (12)
  - Parkinsonism [Unknown]
  - Amnesia [Unknown]
  - Disturbance in attention [Unknown]
  - Akathisia [Unknown]
  - Dystonia [Unknown]
  - Sexual dysfunction [Unknown]
  - Nocturia [Unknown]
  - Polyuria [Unknown]
  - Gastrointestinal disorder [Unknown]
  - Dizziness [Unknown]
  - Tremor [Unknown]
  - Sedation [Unknown]
